FAERS Safety Report 13916231 (Version 1)
Quarter: 2017Q3

REPORT INFORMATION
  Report Type: Spontaneous
  Country: US (occurrence: None)
  Receive Date: 20170827
  Receipt Date: 20170827
  Transmission Date: 20171127
  Serious: Yes (Hospitalization)
  Sender: FDA-Public Use
  Company Number: None

PATIENT
  Age: 79 Year
  Sex: Female

DRUGS (1)
  1. IBRANCE [Suspect]
     Active Substance: PALBOCICLIB
     Indication: BREAST CANCER
     Dosage: FREQUENCY - DAILY FOR 21 DAYS OF 28 DAY CYCLE
     Route: 048
     Dates: start: 20170708, end: 20170807

REACTIONS (3)
  - Atrial fibrillation [None]
  - Platelet count decreased [None]
  - Red blood cell count decreased [None]

NARRATIVE: CASE EVENT DATE: 20170808
